FAERS Safety Report 9291136 (Version 2)
Quarter: 2013Q2

REPORT INFORMATION
  Report Type: Spontaneous
  Country: US (occurrence: US)
  Receive Date: 20130515
  Receipt Date: 20130617
  Transmission Date: 20140414
  Serious: Yes (Other)
  Sender: FDA-Public Use
  Company Number: US-PERRIGO-13US004993

PATIENT
  Age: 64 Year
  Sex: Male
  Weight: 103.4 kg

DRUGS (3)
  1. CETIRIZINE 10MG 4H2 [Suspect]
     Indication: SEASONAL ALLERGY
     Dosage: 10 MG, SINGLE
     Route: 048
     Dates: start: 20130501, end: 20130501
  2. CETIRIZINE 10MG 4H2 [Suspect]
     Dosage: 1/2 TABLET IN THE MORNING, 10 MG IN THE EVENING
     Route: 048
     Dates: start: 20130502, end: 20130502
  3. CETIRIZINE 10MG 4H2 [Suspect]
     Dosage: 1/2 TABLET, SINGLE IN THE MORNING
     Route: 048
     Dates: start: 20130503, end: 20130503

REACTIONS (7)
  - Rash papular [Recovering/Resolving]
  - Hypersensitivity [Recovering/Resolving]
  - Periorbital oedema [Unknown]
  - Rash macular [Unknown]
  - Drug ineffective [Unknown]
  - Wrong technique in drug usage process [Recovered/Resolved]
  - Incorrect dose administered [Recovered/Resolved]
